FAERS Safety Report 24978503 (Version 1)
Quarter: 2025Q1

REPORT INFORMATION
  Report Type: Spontaneous
  Country: DK (occurrence: DK)
  Receive Date: 20250217
  Receipt Date: 20250217
  Transmission Date: 20250409
  Serious: Yes (Hospitalization)
  Sender: ROCHE
  Company Number: None

PATIENT
  Age: 76 Year
  Sex: Female
  Weight: 47 kg

DRUGS (9)
  1. VABYSMO [Suspect]
     Active Substance: FARICIMAB-SVOA
     Indication: Neovascular age-related macular degeneration
     Route: 050
     Dates: start: 20230801
  2. VABYSMO [Suspect]
     Active Substance: FARICIMAB-SVOA
     Route: 050
     Dates: start: 20230911
  3. VABYSMO [Suspect]
     Active Substance: FARICIMAB-SVOA
     Route: 050
     Dates: start: 20231009
  4. VABYSMO [Suspect]
     Active Substance: FARICIMAB-SVOA
     Route: 050
     Dates: start: 20231108
  5. VABYSMO [Suspect]
     Active Substance: FARICIMAB-SVOA
     Route: 050
     Dates: start: 20231206
  6. VABYSMO [Suspect]
     Active Substance: FARICIMAB-SVOA
     Route: 050
     Dates: start: 20240117
  7. VABYSMO [Suspect]
     Active Substance: FARICIMAB-SVOA
     Route: 050
     Dates: start: 20240207
  8. VABYSMO [Suspect]
     Active Substance: FARICIMAB-SVOA
     Route: 050
     Dates: start: 20240229
  9. ACLASTA [Concomitant]
     Active Substance: ZOLEDRONIC ACID
     Indication: Osteoporosis
     Route: 065
     Dates: start: 20230605

REACTIONS (2)
  - Vision blurred [Unknown]
  - Eye inflammation [Unknown]

NARRATIVE: CASE EVENT DATE: 20240201
